FAERS Safety Report 23040441 (Version 1)
Quarter: 2023Q4

REPORT INFORMATION
  Report Type: Other
  Country: US (occurrence: US)
  Receive Date: 20231006
  Receipt Date: 20231006
  Transmission Date: 20240109
  Serious: No
  Sender: FDA-Public Use
  Company Number: US-TRAVERE-2023TVT00139

PATIENT
  Age: 25 Year
  Sex: Male

DRUGS (1)
  1. CHOLBAM [Suspect]
     Active Substance: CHOLIC ACID
     Indication: Refsum^s disease
     Dosage: 250 MG / AS DIRECTED
     Route: 048
     Dates: start: 20230427

REACTIONS (5)
  - Low density lipoprotein increased [Unknown]
  - Aspartate aminotransferase abnormal [Unknown]
  - Alanine aminotransferase abnormal [Unknown]
  - Tachycardia [Unknown]
  - Vitamin D decreased [Unknown]
